FAERS Safety Report 20847603 (Version 3)
Quarter: 2025Q2

REPORT INFORMATION
  Report Type: Report from Study
  Country: US (occurrence: US)
  Receive Date: 20220519
  Receipt Date: 20250508
  Transmission Date: 20250717
  Serious: Yes (Other)
  Sender: ROCHE
  Company Number: US-ROCHE-3099102

PATIENT
  Age: 60 Year
  Sex: Female

DRUGS (2)
  1. NUTROPIN [Suspect]
     Active Substance: SOMATROPIN
     Indication: Hypopituitarism
     Dosage: NUSPIN 10MG 0.2MG SQ DAILY
     Route: 058
     Dates: start: 20200422
  2. NUTROPIN [Suspect]
     Active Substance: SOMATROPIN
     Dosage: NUSPIN 10 MG PEN, 0.2 MG DAILY
     Route: 058

REACTIONS (2)
  - Breast cancer [Unknown]
  - Product storage error [Unknown]
